FAERS Safety Report 13835202 (Version 6)
Quarter: 2017Q3

REPORT INFORMATION
  Report Type: Spontaneous
  Country: IT (occurrence: IT)
  Receive Date: 20170804
  Receipt Date: 20170818
  Transmission Date: 20171127
  Serious: Yes (Other)
  Sender: FDA-Public Use
  Company Number: IT-PFIZER INC-2017337296

PATIENT
  Age: 67 Year
  Sex: Male

DRUGS (10)
  1. KANRENOL [Suspect]
     Active Substance: CANRENOATE POTASSIUM
     Dosage: UNK
     Route: 065
  2. FUROSEMIDE. [Suspect]
     Active Substance: FUROSEMIDE
     Dosage: UNK
     Route: 048
  3. TRIATEC [Suspect]
     Active Substance: RAMIPRIL
     Dosage: UNK
     Route: 048
  4. BRILIQUE [Suspect]
     Active Substance: TICAGRELOR
     Dosage: 90 MG, 2X/DAY
     Route: 048
  5. TORVAST [Suspect]
     Active Substance: ATORVASTATIN
     Dosage: UNK
     Route: 065
  6. AMIODARONE HCL [Suspect]
     Active Substance: AMIODARONE HYDROCHLORIDE
     Dosage: 5 DF, WEEKLY
     Route: 048
  7. LANSOX [Suspect]
     Active Substance: LANSOPRAZOLE
     Dosage: UNK
     Route: 065
  8. BISOPROLOL FUMARATE. [Suspect]
     Active Substance: BISOPROLOL FUMARATE
     Dosage: UNK
     Route: 065
  9. ALLOPURINOL. [Suspect]
     Active Substance: ALLOPURINOL
     Dosage: UNK
     Route: 065
  10. CARDIOASPIRIN [Suspect]
     Active Substance: ASPIRIN
     Dosage: UNK
     Route: 065

REACTIONS (11)
  - Dyspnoea [Unknown]
  - Left ventricular hypertrophy [Unknown]
  - Bradycardia [Unknown]
  - Chest pain [Unknown]
  - Bundle branch block [Unknown]
  - Myocardial infarction [Unknown]
  - Iron deficiency anaemia [Unknown]
  - Ejection fraction decreased [Unknown]
  - Supraventricular extrasystoles [Unknown]
  - Pulmonary oedema [Unknown]
  - Ventricular extrasystoles [Unknown]

NARRATIVE: CASE EVENT DATE: 2010
